FAERS Safety Report 5393505-0 (Version None)
Quarter: 2007Q3

REPORT INFORMATION
  Report Type: 
  Country: None (occurrence: None)
  Receive Date: 20070723
  Receipt Date: 20060717
  Transmission Date: 20080115
  Serious: No
  Sender: FDA-Public Use
  Company Number: A0612499A

PATIENT
  Age: 61 Year
  Sex: Female

DRUGS (9)
  1. AVANDIA [Suspect]
     Dosage: 8MG PER DAY
     Route: 048
     Dates: start: 20060401
  2. EFFEXOR [Concomitant]
  3. NORVASC [Concomitant]
  4. BENAZEPRIL HYDROCHLORIDE [Concomitant]
  5. REQUIP [Concomitant]
  6. LOVASTATIN [Concomitant]
  7. UNKNOWN MEDICATION [Concomitant]
  8. INDOMETHACIN [Concomitant]
  9. METFORMIN HCL [Concomitant]

REACTIONS (1)
  - WEIGHT INCREASED [None]
